FAERS Safety Report 15579777 (Version 1)
Quarter: 2018Q4

REPORT INFORMATION
  Report Type: Spontaneous
  Country: IT (occurrence: IT)
  Receive Date: 20181102
  Receipt Date: 20181102
  Transmission Date: 20190205
  Serious: No
  Sender: FDA-Public Use
  Company Number: IT-B. BRAUN MEDICAL INC.-2058336

PATIENT
  Sex: Male

DRUGS (4)
  1. ADAMEL [Concomitant]
  2. OLIMEL N4E [Concomitant]
  3. CERNIVIT [Concomitant]
  4. DEXTROSE INJECTIONS USP 0264-7510-00 0264-7510-20 [Suspect]
     Active Substance: DEXTROSE

REACTIONS (1)
  - Pyrexia [None]
